FAERS Safety Report 8917443 (Version 1)
Quarter: 2012Q4

REPORT INFORMATION
  Report Type: Report from Study
  Country: US (occurrence: US)
  Receive Date: 20121119
  Receipt Date: 20121119
  Transmission Date: 20130627
  Serious: Yes (Hospitalization)
  Sender: FDA-Public Use
  Company Number: US-ABBOTT-12P-163-1007455-00

PATIENT
  Age: 17 Year
  Sex: Female

DRUGS (14)
  1. VICODIN 5/500 [Suspect]
     Indication: PAIN
  2. HUMIRA [Suspect]
     Indication: CROHN^S DISEASE
  3. HUMIRA [Suspect]
  4. HUMIRA [Suspect]
  5. MORPHINE [Suspect]
     Indication: PAIN
  6. ZINC [Concomitant]
     Indication: PRODUCT USED FOR UNKNOWN INDICATION
     Dosage: Daily
  7. OMEPRAZOLE [Concomitant]
     Indication: PRODUCT USED FOR UNKNOWN INDICATION
     Dosage: Daily
  8. IRON [Concomitant]
     Indication: PRODUCT USED FOR UNKNOWN INDICATION
     Dosage: Daily
  9. CALCIUM [Concomitant]
     Indication: PRODUCT USED FOR UNKNOWN INDICATION
     Dosage: Daily
  10. UNKNOWN MEDICATIONS [Concomitant]
     Indication: PRODUCT USED FOR UNKNOWN INDICATION
  11. PREDNISONE [Concomitant]
     Indication: PRODUCT USED FOR UNKNOWN INDICATION
  12. METHOTREXATE [Concomitant]
     Indication: PRODUCT USED FOR UNKNOWN INDICATION
     Dosage: started at 25mg increased to 50 MG
     Route: 058
  13. FOLIC ACID [Concomitant]
     Indication: PRODUCT USED FOR UNKNOWN INDICATION
     Dosage: 1 mg daily
  14. PENTASA [Concomitant]
     Indication: PRODUCT USED FOR UNKNOWN INDICATION

REACTIONS (15)
  - Crohn^s disease [Not Recovered/Not Resolved]
  - Oropharyngeal pain [Unknown]
  - Drug ineffective [Unknown]
  - Pancreatitis [Unknown]
  - Pruritus allergic [Unknown]
  - Drug ineffective [Unknown]
  - Cough [Unknown]
  - Sputum discoloured [Unknown]
  - Tonsillar hypertrophy [Unknown]
  - Blood viscosity increased [Unknown]
  - Epistaxis [Unknown]
  - Toothache [Unknown]
  - Gingival infection [Unknown]
  - Pruritus allergic [Unknown]
  - Malaise [Unknown]
